FAERS Safety Report 4796117-2 (Version None)
Quarter: 2005Q4

REPORT INFORMATION
  Report Type: 
  Country: None (occurrence: None)
  Receive Date: 20051007
  Receipt Date: 20050927
  Transmission Date: 20060501
  Serious: Yes (Hospitalization)
  Sender: FDA-Public Use
  Company Number: HQWYE704028SEP05

PATIENT
  Age: 61 Year
  Sex: Male

DRUGS (2)
  1. ADVIL [Suspect]
     Indication: LIGAMENT INJURY
     Dates: start: 20040101
  2. ASPIRIN [Suspect]
     Indication: LIGAMENT INJURY
     Dates: start: 20040101

REACTIONS (5)
  - ANAEMIA [None]
  - DIVERTICULUM INTESTINAL [None]
  - PLEURAL EFFUSION [None]
  - RECTAL HAEMORRHAGE [None]
  - STAPHYLOCOCCAL INFECTION [None]
